FAERS Safety Report 4296453-2 (Version None)
Quarter: 2004Q1

REPORT INFORMATION
  Report Type: 
  Country: None (occurrence: None)
  Receive Date: 20040122
  Receipt Date: 20031117
  Transmission Date: 20041129
  Serious: Yes (Other)
  Sender: FDA-Public Use
  Company Number: 2003039759

PATIENT
  Age: 49 Year
  Sex: Female
  Weight: 63.5036 kg

DRUGS (2)
  1. RELPAX [Suspect]
     Indication: MIGRAINE
     Dosage: 40 MG (PRN), ORAL
     Route: 048
     Dates: start: 20030916
  2. ESCITALOPRAM (ESCITALOPRAM) [Suspect]
     Indication: DEPRESSION
     Dosage: ORAL
     Route: 048
     Dates: start: 20030101

REACTIONS (2)
  - DRUG INTERACTION [None]
  - VISION BLURRED [None]
